FAERS Safety Report 5799978-3 (Version None)
Quarter: 2008Q3

REPORT INFORMATION
  Report Type: 
  Country: None (occurrence: None)
  Receive Date: 20080703
  Receipt Date: 20080630
  Transmission Date: 20090109
  Serious: Yes (Other)
  Sender: FDA-Public Use
  Company Number: US-ASTRAZENECA-2007UW12598

PATIENT
  Age: 12243 Day
  Sex: Male
  Weight: 84.6 kg

DRUGS (4)
  1. SEROQUEL [Suspect]
     Indication: SLEEP DISORDER
     Route: 048
     Dates: start: 20010401, end: 20040806
  2. SEROQUEL [Suspect]
     Indication: ANGER
     Route: 048
     Dates: start: 20010401, end: 20040806
  3. LITHIUM CARBONATE [Concomitant]
  4. WELLBUTRIN [Concomitant]

REACTIONS (7)
  - BENIGN PANCREATIC NEOPLASM [None]
  - BLOOD CHOLESTEROL INCREASED [None]
  - GASTROINTESTINAL DISORDER [None]
  - GASTROOESOPHAGEAL REFLUX DISEASE [None]
  - OLIGURIA [None]
  - PANCREATITIS CHRONIC [None]
  - THROMBOSIS [None]
